FAERS Safety Report 5682238-9 (Version None)
Quarter: 2008Q1

REPORT INFORMATION
  Report Type: 
  Country: None (occurrence: None)
  Receive Date: 20080325
  Receipt Date: 20080313
  Transmission Date: 20080703
  Serious: Yes (Death)
  Sender: FDA-Public Use
  Company Number: 2008S1004268

PATIENT
  Age: 45 Year
  Sex: Female

DRUGS (4)
  1. AZATHIOPRINE [Suspect]
     Indication: SYSTEMIC LUPUS ERYTHEMATOSUS
  2. CYCLOPHOSPHAMIDE [Suspect]
     Route: 048
  3. PREDNISOLONE [Suspect]
  4. RITUXIMAB (RITUXIMAB) DOSE, FORM, ROUTE AND FREQUENCY 375 MG;UNKNOWN [Suspect]
     Indication: SYSTEMIC LUPUS ERYTHEMATOSUS
     Dosage: 375 MG

REACTIONS (7)
  - CEREBELLAR SYNDROME [None]
  - DYSPHAGIA [None]
  - DYSPHASIA [None]
  - PROGRESSIVE MULTIFOCAL LEUKOENCEPHALOPATHY [None]
  - RESPIRATORY FAILURE [None]
  - VISION BLURRED [None]
  - WEIGHT DECREASED [None]
